FAERS Safety Report 6970796-3 (Version None)
Quarter: 2010Q3

REPORT INFORMATION
  Report Type: 
  Country: None (occurrence: None)
  Receive Date: 20100908
  Receipt Date: 20100901
  Transmission Date: 20110219
  Serious: Yes (Life-Threatening)
  Sender: FDA-Public Use
  Company Number: A0878948A

PATIENT
  Age: 50 Year
  Sex: Male

DRUGS (8)
  1. VOTRIENT [Suspect]
     Dosage: 800MG UNKNOWN
     Route: 048
     Dates: start: 20100101
  2. KEPPRA [Suspect]
     Indication: PRODUCT USED FOR UNKNOWN INDICATION
     Route: 065
  3. LORAZEPAM [Concomitant]
  4. HYDROCODONE [Concomitant]
  5. LOTRISONE [Concomitant]
  6. GLUCOSAMINE [Concomitant]
  7. ALEVE (CAPLET) [Concomitant]
  8. BENADRYL [Concomitant]

REACTIONS (1)
  - RASH [None]
